FAERS Safety Report 10051472 (Version 1)
Quarter: 2014Q2

REPORT INFORMATION
  Report Type: Spontaneous
  Country: IT (occurrence: IT)
  Receive Date: 20140401
  Receipt Date: 20140401
  Transmission Date: 20141212
  Serious: Yes (Hospitalization)
  Sender: FDA-Public Use
  Company Number: IT-CELGENEUS-083-20785-14033184

PATIENT
  Age: 62 Year
  Sex: Male

DRUGS (5)
  1. THALIDOMIDE CELGENE [Suspect]
     Indication: PLASMA CELL MYELOMA
     Dosage: 100 MILLIGRAM
     Route: 048
     Dates: start: 20131217, end: 20140303
  2. VELCADE [Suspect]
     Indication: PLASMA CELL MYELOMA
     Route: 058
     Dates: start: 20131217, end: 20140303
  3. SOLDESAM [Suspect]
     Indication: PLASMA CELL MYELOMA
     Route: 048
  4. PANTOPRAZOLE SODIUM [Concomitant]
     Indication: GASTRITIS PROPHYLAXIS
     Route: 048
     Dates: start: 20131217, end: 20140303
  5. ACICLOVIR SODIUM [Concomitant]
     Indication: PRODUCT USED FOR UNKNOWN INDICATION
     Route: 048
     Dates: start: 20131217, end: 20140303

REACTIONS (1)
  - Pneumonitis [Unknown]
